FAERS Safety Report 6552848-5 (Version None)
Quarter: 2010Q1

REPORT INFORMATION
  Report Type: 
  Country: None (occurrence: None)
  Receive Date: 20100122
  Receipt Date: 20090420
  Transmission Date: 20100710
  Serious: Yes (Death)
  Sender: FDA-Public Use
  Company Number: 004390

PATIENT

DRUGS (4)
  1. PREDNISOLONE [Suspect]
     Indication: VASCULITIS NECROTISING
     Dosage: 1 MG/KG QD, 1 MG/KG/DAY ORAL, 15 MG/KG QD, 15  MG/DAY ORAL, 7.5  MG/KG QD, 7.5 MG/DAY ORAL
     Route: 048
  2. PREDNISOLONE [Suspect]
     Indication: VASCULITIS NECROTISING
     Dosage: 1 MG/KG QD, 1 MG/KG/DAY ORAL, 15 MG/KG QD, 15  MG/DAY ORAL, 7.5  MG/KG QD, 7.5 MG/DAY ORAL
     Route: 048
  3. PREDNISOLONE [Suspect]
     Indication: VASCULITIS NECROTISING
     Dosage: 1 MG/KG QD, 1 MG/KG/DAY ORAL, 15 MG/KG QD, 15  MG/DAY ORAL, 7.5  MG/KG QD, 7.5 MG/DAY ORAL
     Route: 048
  4. METHOTREXATE [Suspect]
     Indication: VASCULITIS NECROTISING
     Dosage: 15MG/WEEK ESCALATING TO A MAXINE OF 20-25MG/WEEK BY 12 WEEKS ORAL
     Route: 048

REACTIONS (3)
  - ANTI-NEUTROPHIL CYTOPLASMIC ANTIBODY POSITIVE VASCULITIS [None]
  - CARDIAC DISORDER [None]
  - DISEASE RECURRENCE [None]
